FAERS Safety Report 17391886 (Version 1)
Quarter: 2020Q1

REPORT INFORMATION
  Report Type: Spontaneous
  Country: BR (occurrence: BR)
  Receive Date: 20200207
  Receipt Date: 20200207
  Transmission Date: 20200409
  Serious: Yes (Other)
  Sender: FDA-Public Use
  Company Number: BR-EMD SERONO-9144031

PATIENT
  Sex: Female

DRUGS (2)
  1. GLIFAGE [Suspect]
     Active Substance: METFORMIN HYDROCHLORIDE
     Indication: DIABETES MELLITUS
     Dosage: OLD FORMAT
     Route: 048
     Dates: start: 201911, end: 202001
  2. GLIFAGE [Suspect]
     Active Substance: METFORMIN HYDROCHLORIDE
     Dosage: SHAPE AND FORMULA CHANGED (NEW FORMAT)
     Dates: start: 202001, end: 202001

REACTIONS (4)
  - Abdominal pain [Recovered/Resolved]
  - Diarrhoea [Unknown]
  - Haematochezia [Recovered/Resolved]
  - Vomiting [Unknown]

NARRATIVE: CASE EVENT DATE: 202001
